FAERS Safety Report 4423099-5 (Version None)
Quarter: 2004Q3

REPORT INFORMATION
  Report Type: 
  Country: None (occurrence: None)
  Receive Date: 20040805
  Receipt Date: 20040727
  Transmission Date: 20050211
  Serious: Yes (Hospitalization, Other)
  Sender: FDA-Public Use
  Company Number: US-2004-029370

PATIENT
  Age: 51 Year
  Sex: Female

DRUGS (1)
  1. BETASERON [Suspect]
     Indication: MULTIPLE SCLEROSIS
     Dosage: 8 MIU, EVERY 2D, SUBCUTANEOUS
     Route: 058
     Dates: start: 20020308

REACTIONS (6)
  - BREAST CANCER FEMALE [None]
  - IMPLANT SITE INFECTION [None]
  - INJECTION SITE PRURITUS [None]
  - INJECTION SITE RASH [None]
  - NECROSIS [None]
  - POSTOPERATIVE WOUND COMPLICATION [None]
